FAERS Safety Report 6112688-8 (Version None)
Quarter: 2009Q1

REPORT INFORMATION
  Report Type: 
  Country: None (occurrence: None)
  Receive Date: 20090312
  Receipt Date: 20090112
  Transmission Date: 20090719
  Serious: Yes (Death)
  Sender: FDA-Public Use
  Company Number: US-PFIZER INC-2008159679

PATIENT
  Sex: Male
  Weight: 158.73 kg

DRUGS (8)
  1. NORVASC [Suspect]
     Indication: HYPERTENSION
     Dosage: 5 MG, 1X/DAY
     Route: 048
  2. METFORMIN [Concomitant]
  3. LASIX [Concomitant]
  4. INSULIN [Concomitant]
  5. BENICAR [Concomitant]
  6. LOTENSIN [Concomitant]
  7. METOPROLOL [Concomitant]
  8. CRESTOR [Concomitant]

REACTIONS (1)
  - MALIGNANT MELANOMA [None]
